FAERS Safety Report 5270853-6 (Version None)
Quarter: 2007Q1

REPORT INFORMATION
  Report Type: 
  Country: None (occurrence: None)
  Receive Date: 20070315
  Receipt Date: 20070228
  Transmission Date: 20070707
  Serious: Yes (Life-Threatening, Hospitalization)
  Sender: FDA-Public Use
  Company Number: S07-FRA-00626-01

PATIENT
  Age: 81 Year
  Sex: Female
  Weight: 60 kg

DRUGS (4)
  1. EBIXA (MEMANTINE) [Suspect]
     Indication: DEMENTIA ALZHEIMER'S TYPE
     Dosage: 10 DROPS TID PO
     Route: 048
     Dates: start: 20061217, end: 20070107
  2. SOTALOL HCL [Suspect]
     Indication: ARRHYTHMIA
     Dosage: 1 QD PO
     Route: 048
     Dates: start: 19970101, end: 20070107
  3. KARDEGIC (ACETYLSALICYLATE LYSINE) [Suspect]
     Indication: PROPHYLAXIS
     Dosage: 160 MG QD PO
     Route: 048
     Dates: start: 19970101, end: 20070107
  4. EXELON [Suspect]
     Indication: DEMENTIA ALZHEIMER'S TYPE
     Dates: start: 20050101, end: 20070107

REACTIONS (14)
  - BLOOD CREATINE PHOSPHOKINASE INCREASED [None]
  - BUNDLE BRANCH BLOCK LEFT [None]
  - CANDIDIASIS [None]
  - DEHYDRATION [None]
  - DEMENTIA ALZHEIMER'S TYPE [None]
  - DIABETIC HYPEROSMOLAR COMA [None]
  - INTRACARDIAC THROMBUS [None]
  - LIVER DISORDER [None]
  - MULTI-ORGAN FAILURE [None]
  - PANCREATITIS [None]
  - PLATELET COUNT DECREASED [None]
  - RENAL FAILURE ACUTE [None]
  - TRANSAMINASES INCREASED [None]
  - URINARY TRACT INFECTION [None]
